FAERS Safety Report 9506714 (Version 1)
Quarter: 2013Q3

REPORT INFORMATION
  Report Type: Spontaneous
  Country: JP (occurrence: JP)
  Receive Date: 20130908
  Receipt Date: 20130908
  Transmission Date: 20140515
  Serious: Yes (Other)
  Sender: FDA-Public Use
  Company Number: PHHY2013JP096938

PATIENT
  Sex: Female

DRUGS (2)
  1. DIOVAN [Suspect]
     Indication: HYPERTENSION
     Dosage: UNK UKN, UNK
  2. NORVASC [Concomitant]
     Dosage: UNK UKN, UNK

REACTIONS (7)
  - Glaucoma [Unknown]
  - Osteoarthritis [Recovering/Resolving]
  - Post inflammatory pigmentation change [Not Recovered/Not Resolved]
  - Dry mouth [Unknown]
  - Musculoskeletal stiffness [Unknown]
  - Thirst [Unknown]
  - Pain [Recovering/Resolving]
